FAERS Safety Report 10982378 (Version 1)
Quarter: 2015Q2

REPORT INFORMATION
  Report Type: Spontaneous
  Country: PR (occurrence: None)
  Receive Date: 20150401
  Receipt Date: 20150401
  Transmission Date: 20150821
  Serious: Yes (Life-Threatening)
  Sender: FDA-Public Use
  Company Number: None

PATIENT
  Age: 65 Year
  Sex: Male
  Weight: 81.65 kg

DRUGS (7)
  1. ENOXAPARIN [Concomitant]
     Active Substance: ENOXAPARIN
  2. LEVAQUIN [Concomitant]
     Active Substance: LEVOFLOXACIN
  3. AMIKIN [Concomitant]
     Active Substance: AMIKACIN SULFATE
  4. POLYMYXIN [Suspect]
     Active Substance: POLYMYXIN
     Indication: ARTHRITIS BACTERIAL
     Dosage: 500,000
     Route: 042
     Dates: start: 20150318, end: 20150324
  5. CUBICIN [Suspect]
     Active Substance: DAPTOMYCIN
     Indication: ARTHRITIS BACTERIAL
     Route: 042
     Dates: start: 20150318, end: 20150324
  6. ENALAPRIL [Concomitant]
     Active Substance: ENALAPRIL
  7. VANCOMYCIN [Concomitant]
     Active Substance: VANCOMYCIN

REACTIONS (1)
  - Stevens-Johnson syndrome [None]

NARRATIVE: CASE EVENT DATE: 20150320
